FAERS Safety Report 8949900 (Version 3)
Quarter: 2013Q1

REPORT INFORMATION
  Report Type: Spontaneous
  Country: JP (occurrence: JP)
  Receive Date: 20121206
  Receipt Date: 20130131
  Transmission Date: 20140127
  Serious: Yes (Life-Threatening, Disabling, Other)
  Sender: FDA-Public Use
  Company Number: JP-PFIZER INC-2012306944

PATIENT
  Age: 76 Year
  Sex: Male
  Weight: 50 kg

DRUGS (2)
  1. JZOLOFT [Suspect]
     Indication: DEPRESSION
     Dosage: 25 MG DAILY
     Route: 048
     Dates: start: 20121030, end: 20121113
  2. JZOLOFT [Suspect]
     Dosage: 50 MG, 1X/DAY
     Route: 048
     Dates: start: 20121114, end: 20121120

REACTIONS (5)
  - Fall [Recovered/Resolved]
  - Diarrhoea [Recovering/Resolving]
  - Dizziness [Recovering/Resolving]
  - Laceration [Unknown]
  - Urinary incontinence [Recovered/Resolved]
